FAERS Safety Report 24769613 (Version 3)
Quarter: 2025Q3

REPORT INFORMATION
  Report Type: Spontaneous
  Country: US (occurrence: US)
  Receive Date: 20241224
  Receipt Date: 20250816
  Transmission Date: 20251020
  Serious: No
  Sender: ALEXION PHARMACEUTICALS
  Company Number: US-AstraZeneca-CH-00772038A

PATIENT
  Age: 18 Year
  Sex: Male

DRUGS (1)
  1. STRENSIQ [Suspect]
     Active Substance: ASFOTASE ALFA
     Indication: Hypophosphatasia
     Dosage: 128 MILLIGRAM, TIW
     Dates: start: 20230929

REACTIONS (2)
  - Injection site hypertrophy [Unknown]
  - Injection site reaction [Unknown]
